FAERS Safety Report 6540877-7 (Version None)
Quarter: 2010Q1

REPORT INFORMATION
  Report Type: 
  Country: None (occurrence: None)
  Receive Date: 20100118
  Receipt Date: 20100113
  Transmission Date: 20100710
  Serious: Yes (Death, Hospitalization)
  Sender: FDA-Public Use
  Company Number: PHHY2010MX01792

PATIENT
  Age: 91 Year
  Sex: Female

DRUGS (1)
  1. DIOVAN HCT [Suspect]
     Indication: HYPERTENSION
     Dosage: ONE TABLET PER DAY
     Route: 048
     Dates: start: 20070401

REACTIONS (2)
  - CARDIAC ARREST [None]
  - CEREBROVASCULAR DISORDER [None]
